FAERS Safety Report 15231328 (Version 2)
Quarter: 2018Q3

REPORT INFORMATION
  Report Type: Spontaneous
  Country: AU (occurrence: AU)
  Receive Date: 20180802
  Receipt Date: 20180802
  Transmission Date: 20181010
  Serious: Yes (Other)
  Sender: FDA-Public Use
  Company Number: PHHY2018AU059598

PATIENT
  Sex: Male

DRUGS (4)
  1. NAPROXEN. [Concomitant]
     Active Substance: NAPROXEN
     Indication: PRODUCT USED FOR UNKNOWN INDICATION
     Route: 065
  2. COLCHICINE. [Concomitant]
     Active Substance: COLCHICINE
     Indication: PRODUCT USED FOR UNKNOWN INDICATION
     Route: 065
  3. ETANERCEPT [Suspect]
     Active Substance: ETANERCEPT
     Indication: PRODUCT USED FOR UNKNOWN INDICATION
     Dosage: UNK
     Route: 065
     Dates: start: 201509
  4. ZOLEDRONIC ACID [Suspect]
     Active Substance: ZOLEDRONIC ACID
     Indication: CHRONIC RECURRENT MULTIFOCAL OSTEOMYELITIS
     Dosage: EVERY SIX MONTH
     Route: 065
     Dates: start: 201801

REACTIONS (5)
  - Inappropriate schedule of drug administration [Unknown]
  - Product use in unapproved indication [Unknown]
  - Amyloidosis [Unknown]
  - Weight decreased [Unknown]
  - Body height below normal [Unknown]
